FAERS Safety Report 24612878 (Version 1)
Quarter: 2024Q4

REPORT INFORMATION
  Report Type: Spontaneous
  Country: US (occurrence: None)
  Receive Date: 20241112
  Receipt Date: 20241112
  Transmission Date: 20250115
  Serious: Yes (Death)
  Sender: Public
  Company Number: None

PATIENT
  Age: 52 Year
  Sex: Female

DRUGS (14)
  1. OPSUMIT [Suspect]
     Active Substance: MACITENTAN
     Indication: Pulmonary hypertension
     Dosage: FREQUENCY : DAILY;?
     Route: 048
     Dates: start: 20240425, end: 20241102
  2. ROXANOL [Concomitant]
     Active Substance: MORPHINE SULFATE
  3. HALDOL [Concomitant]
  4. LORAZEPAM [Concomitant]
  5. QUETIAPINE [Concomitant]
  6. BISACODYL [Concomitant]
  7. HYOSCYAMINE [Concomitant]
     Active Substance: HYOSCYAMINE
  8. ZOFRAN [Concomitant]
     Active Substance: ONDANSETRON HYDROCHLORIDE
  9. TYLENOL [Concomitant]
     Active Substance: ACETAMINOPHEN
  10. OXYGEN INTRANASAL [Concomitant]
  11. MIDODRINE [Concomitant]
     Active Substance: MIDODRINE
  12. POTASSIUM CHLORIDE [Concomitant]
  13. SPIRONOLACTONE [Concomitant]
  14. LACTULOSE [Concomitant]

REACTIONS (5)
  - Cellulitis [None]
  - Bacteraemia [None]
  - Infection [None]
  - Hypervolaemia [None]
  - Right ventricular failure [None]

NARRATIVE: CASE EVENT DATE: 20241021
